FAERS Safety Report 5040359-8 (Version None)
Quarter: 2006Q2

REPORT INFORMATION
  Report Type: 
  Country: None (occurrence: None)
  Receive Date: 20060630
  Receipt Date: 20060626
  Transmission Date: 20061013
  Serious: Yes (Other)
  Sender: FDA-Public Use
  Company Number: US-GLAXOSMITHKLINE-A0610275A

PATIENT
  Age: 34 Year
  Sex: Female

DRUGS (2)
  1. GOODY'S EXTRA STRENGTH FAST RELIEF TABLETS [Suspect]
     Indication: HEADACHE
  2. NO CONCURRENT MEDICATION [Concomitant]

REACTIONS (1)
  - DEPENDENCE [None]
